FAERS Safety Report 6956990-6 (Version None)
Quarter: 2010Q3

REPORT INFORMATION
  Report Type: 
  Country: None (occurrence: None)
  Receive Date: 20100827
  Receipt Date: 20100827
  Transmission Date: 20110219
  Serious: Yes (Other)
  Sender: FDA-Public Use
  Company Number: None

PATIENT
  Age: 16 Month
  Sex: Male

DRUGS (2)
  1. AVELOX [Suspect]
     Indication: BRONCHITIS
     Dosage: 400MG ONCE DAILY PO
     Route: 048
     Dates: start: 20100824, end: 20100825
  2. AVELOX [Suspect]
     Indication: SINUSITIS
     Dosage: 400MG ONCE DAILY PO
     Route: 048
     Dates: start: 20100824, end: 20100825

REACTIONS (2)
  - HALLUCINATION [None]
  - SLEEP TERROR [None]
